FAERS Safety Report 4486980-7 (Version None)
Quarter: 2004Q4

REPORT INFORMATION
  Report Type: 
  Country: None (occurrence: None)
  Receive Date: 20041027
  Receipt Date: 20041019
  Transmission Date: 20050328
  Serious: Yes (Other)
  Sender: FDA-Public Use
  Company Number: US-ROCHE-383879

PATIENT
  Age: 41 Year
  Sex: Female

DRUGS (5)
  1. KYTRIL [Suspect]
     Indication: DRUG USE FOR UNKNOWN INDICATION
     Route: 065
  2. TAXOL [Concomitant]
     Route: 042
  3. DECADRON [Concomitant]
  4. BENADRYL [Concomitant]
  5. PEPCID [Concomitant]

REACTIONS (10)
  - AMNESIA [None]
  - CHEST DISCOMFORT [None]
  - CHILLS [None]
  - DYSPNOEA [None]
  - FLUSHING [None]
  - MUSCULOSKELETAL STIFFNESS [None]
  - NAUSEA [None]
  - OXYGEN SATURATION DECREASED [None]
  - TREMOR [None]
  - URINARY INCONTINENCE [None]
